FAERS Safety Report 6148877-6 (Version None)
Quarter: 2009Q2

REPORT INFORMATION
  Report Type: 
  Country: None (occurrence: None)
  Receive Date: 20090407
  Receipt Date: 20090326
  Transmission Date: 20091009
  Serious: Yes (Hospitalization, Other)
  Sender: FDA-Public Use
  Company Number: SPV1-2009-00181

PATIENT
  Age: 22 Month
  Sex: Male
  Weight: 13.5 kg

DRUGS (1)
  1. ELAPRASE [Suspect]
     Indication: MUCOPOLYSACCHARIDOSIS II
     Dosage: 0.5 MG, IV DRIP
     Route: 041
     Dates: start: 20070523

REACTIONS (3)
  - ABNORMAL BEHAVIOUR [None]
  - HYPERTENSION [None]
  - INFUSION RELATED REACTION [None]
